FAERS Safety Report 9599381 (Version 1)
Quarter: 2013Q4

REPORT INFORMATION
  Report Type: Spontaneous
  Country: US (occurrence: US)
  Receive Date: 20131004
  Receipt Date: 20131004
  Transmission Date: 20140711
  Serious: No
  Sender: FDA-Public Use
  Company Number: US-AMGEN-USASP2013029391

PATIENT
  Age: 58 Year
  Sex: Female
  Weight: 74.83 kg

DRUGS (10)
  1. ENBREL [Suspect]
     Indication: PRODUCT USED FOR UNKNOWN INDICATION
     Dosage: 50 MG, QWK
     Route: 058
     Dates: end: 201303
  2. METHOTREXATE [Concomitant]
     Dosage: 2.5 MG, UNK
  3. PREDNISONE [Concomitant]
     Dosage: 5 MG, UNK
  4. FOLIC ACID [Concomitant]
     Dosage: UNK
  5. METOPROLOL [Concomitant]
     Dosage: 100MGER
  6. COQ [Concomitant]
     Dosage: 100 MG, UNK
  7. BABY ASPIRIN [Concomitant]
     Dosage: CHW 81MG
  8. GLUCO + CHONDROITIN [Concomitant]
     Dosage: UNK
  9. CALCIUM [Concomitant]
     Dosage: 1200 UNK, UNK
  10. FISH OIL [Concomitant]
     Dosage: UNK

REACTIONS (2)
  - Pain [Unknown]
  - Drug effect incomplete [Unknown]
